FAERS Safety Report 13129289 (Version 1)
Quarter: 2017Q1

REPORT INFORMATION
  Report Type: Spontaneous
  Country: US (occurrence: US)
  Receive Date: 20170117
  Receipt Date: 20170117
  Transmission Date: 20170428
  Serious: Yes (Hospitalization)
  Sender: FDA-Public Use
  Company Number: None

PATIENT
  Age: 39 Year
  Sex: Female

DRUGS (6)
  1. FERROUS SULFATE. [Concomitant]
     Active Substance: FERROUS SULFATE
  2. WARFARIN [Concomitant]
     Active Substance: WARFARIN
  3. METOLAZONE. [Concomitant]
     Active Substance: METOLAZONE
  4. ADEMPAS [Suspect]
     Active Substance: RIOCIGUAT
     Indication: PULMONARY ARTERIAL HYPERTENSION
     Route: 048
     Dates: start: 20161223
  5. FAMOTIDINE. [Concomitant]
     Active Substance: FAMOTIDINE
  6. ERGOCALCIFEROL. [Concomitant]
     Active Substance: ERGOCALCIFEROL

REACTIONS (6)
  - Faeces discoloured [None]
  - Fatigue [None]
  - Dizziness postural [None]
  - Abdominal pain [None]
  - Muscle spasms [None]
  - Gastrointestinal haemorrhage [None]

NARRATIVE: CASE EVENT DATE: 20170110
